FAERS Safety Report 9498483 (Version 1)
Quarter: 2013Q3

REPORT INFORMATION
  Report Type: Spontaneous
  Country: US (occurrence: None)
  Receive Date: 20130830
  Receipt Date: 20130830
  Transmission Date: 20140515
  Serious: Yes (Other)
  Sender: FDA-Public Use
  Company Number: SYM-2013-10024

PATIENT
  Age: 28 Year
  Sex: Male

DRUGS (1)
  1. XENAZINE (TETRABENAZINE) (TETRABENAZINE) [Suspect]
     Indication: HUNTINGTON^S DISEASE
     Dosage: 12.5 MGG , 2 IN 1 D, ORAL

REACTIONS (2)
  - Amnesia [None]
  - Dyskinesia [None]
